FAERS Safety Report 7866128-9 (Version None)
Quarter: 2011Q4

REPORT INFORMATION
  Report Type: 
  Country: None (occurrence: None)
  Receive Date: 20111028
  Receipt Date: 20110428
  Transmission Date: 20120403
  Serious: No
  Sender: FDA-Public Use
  Company Number: US-GLAXOSMITHKLINE-A0924919A

PATIENT
  Age: 84 Year
  Sex: Male

DRUGS (11)
  1. ASPIRIN [Concomitant]
  2. LEVOXYL [Concomitant]
  3. PENTOXIFYLLINE [Concomitant]
  4. VERAPAMIL [Concomitant]
  5. ALLOPURINOL [Concomitant]
  6. ADVAIR DISKUS 100/50 [Suspect]
     Indication: CHRONIC OBSTRUCTIVE PULMONARY DISEASE
     Dosage: 1PUFF TWICE PER DAY
     Route: 055
     Dates: start: 19960101, end: 20110421
  7. CARBAMAZEPINE [Concomitant]
  8. HYDROCHLOROTHIAZIDE [Concomitant]
  9. VITAMIN TAB [Concomitant]
  10. DIPYRIDAMOLE [Concomitant]
  11. ADVAIR DISKUS 100/50 [Suspect]
     Dosage: 2PUFF THREE TIMES PER DAY
     Route: 055
     Dates: start: 20110427, end: 20110427

REACTIONS (1)
  - EPISTAXIS [None]
